FAERS Safety Report 7366832-5 (Version None)
Quarter: 2011Q1

REPORT INFORMATION
  Report Type: 
  Country: None (occurrence: None)
  Receive Date: 20110322
  Receipt Date: 20110318
  Transmission Date: 20110831
  Serious: Yes (Other)
  Sender: FDA-Public Use
  Company Number: AU-ROCHE-766348

PATIENT
  Age: 57 Year
  Sex: Female

DRUGS (7)
  1. PREMARIN [Suspect]
     Route: 065
  2. NEXIUM [Suspect]
     Route: 065
  3. CHANTIX [Suspect]
     Route: 065
  4. NITRAZEPAM [Suspect]
     Route: 065
  5. MERSYNDOL FORTE [Suspect]
     Indication: PAIN
     Dosage: DOSE: UNSPECIFIED
     Route: 065
  6. OXYCONTIN [Suspect]
     Route: 065
  7. DIAZEPAM [Suspect]
     Route: 065

REACTIONS (2)
  - SUICIDE ATTEMPT [None]
  - MULTIPLE DRUG OVERDOSE INTENTIONAL [None]
